FAERS Safety Report 8643854 (Version 8)
Quarter: 2013Q4

REPORT INFORMATION
  Report Type: Spontaneous
  Country: US (occurrence: US)
  Receive Date: 20120629
  Receipt Date: 20131029
  Transmission Date: 20140711
  Serious: Yes (Hospitalization, Disabling, Other)
  Sender: FDA-Public Use
  Company Number: US-009507513-1206USA04854

PATIENT
  Sex: Female
  Weight: 70.75 kg

DRUGS (5)
  1. FOSAMAX [Suspect]
     Indication: OSTEOPOROSIS
     Dosage: UNK
     Route: 048
     Dates: start: 19960101, end: 20040326
  2. FOSAMAX [Suspect]
     Indication: OSTEOPOROSIS PROPHYLAXIS
     Dosage: 70 MG, QW
     Route: 048
  3. FOSAMAX [Suspect]
     Dosage: 70 MG, QW
     Route: 048
  4. BONIVA [Suspect]
     Indication: MENOPAUSE
     Dosage: 150 MG, UNK
     Dates: start: 20061201, end: 20080128
  5. BONIVA [Suspect]
     Indication: PROPHYLAXIS

REACTIONS (69)
  - Femur fracture [Unknown]
  - Femur fracture [Unknown]
  - Fracture nonunion [Unknown]
  - Low turnover osteopathy [Unknown]
  - Osteoporosis [Unknown]
  - Stress fracture [Unknown]
  - Femur fracture [Unknown]
  - Cholecystectomy [Unknown]
  - Loss of consciousness [Unknown]
  - Femoral neck fracture [Unknown]
  - Internal fixation of fracture [Unknown]
  - Open reduction of fracture [Unknown]
  - Femur fracture [Unknown]
  - Intramedullary rod insertion [Unknown]
  - Renal failure [Unknown]
  - Anaemia [Recovering/Resolving]
  - Intramedullary rod insertion [Unknown]
  - Device failure [Unknown]
  - Femur fracture [Unknown]
  - Bone graft [Unknown]
  - Tonsillectomy [Unknown]
  - Pyrexia [Unknown]
  - Femur fracture [Unknown]
  - Hyperlipidaemia [Unknown]
  - Osteopenia [Unknown]
  - Depression [Unknown]
  - Hypoalbuminaemia [Unknown]
  - Foot fracture [Unknown]
  - Type 2 diabetes mellitus [Unknown]
  - Osteoarthritis [Unknown]
  - Lumbar spinal stenosis [Unknown]
  - Haemorrhagic anaemia [Unknown]
  - Coagulopathy [Unknown]
  - Coronary artery disease [Unknown]
  - Intervertebral disc protrusion [Unknown]
  - Proteinuria [Unknown]
  - Palpitations [Unknown]
  - Urinary incontinence [Not Recovered/Not Resolved]
  - Cellulitis [Unknown]
  - Abscess limb [Unknown]
  - Venous insufficiency [Unknown]
  - Fall [Unknown]
  - Head injury [Unknown]
  - Confusional state [Unknown]
  - Haematoma [Unknown]
  - Incision site cellulitis [Unknown]
  - Upper-airway cough syndrome [Unknown]
  - Depression [Unknown]
  - Haemoglobin abnormal [Unknown]
  - Dyspnoea [Recovered/Resolved]
  - Venous insufficiency [Not Recovered/Not Resolved]
  - Lumbar spinal stenosis [Unknown]
  - Kyphosis [Unknown]
  - Thyroid function test abnormal [Unknown]
  - Sleep disorder [Unknown]
  - Skin irritation [Unknown]
  - Skin disorder [Unknown]
  - Lip injury [Unknown]
  - Spondylolisthesis [Unknown]
  - Sciatica [Unknown]
  - Lumbar radiculopathy [Unknown]
  - Endodontic procedure [Unknown]
  - Gingival disorder [Unknown]
  - Joint effusion [Unknown]
  - Muscle spasms [Unknown]
  - Back pain [Unknown]
  - Oedema peripheral [Not Recovered/Not Resolved]
  - Constipation [Unknown]
  - Gastrooesophageal reflux disease [Unknown]
